FAERS Safety Report 19417191 (Version 2)
Quarter: 2021Q2

REPORT INFORMATION
  Report Type: Report from Study
  Country: None (occurrence: US)
  Receive Date: 20210614
  Receipt Date: 20210622
  Transmission Date: 20210717
  Serious: Yes (Hospitalization, Other)
  Sender: FDA-Public Use
  Company Number: US-ABBVIE-21K-163-3945075-00

PATIENT
  Age: 46 Year
  Sex: Female
  Weight: 69.92 kg

DRUGS (8)
  1. CODEINE [Concomitant]
     Active Substance: CODEINE
     Indication: PRODUCT USED FOR UNKNOWN INDICATION
  2. ELDERBERRY [Concomitant]
     Active Substance: HERBALS
     Indication: SUPPLEMENTATION THERAPY
  3. VITAMIN D [Concomitant]
     Active Substance: VITAMIN D NOS
     Indication: SUPPLEMENTATION THERAPY
  4. SKYRIZI [Suspect]
     Active Substance: RISANKIZUMAB-RZAA
     Indication: PSORIASIS
     Route: 058
     Dates: start: 202001, end: 202101
  5. SKYRIZI [Suspect]
     Active Substance: RISANKIZUMAB-RZAA
     Route: 058
     Dates: start: 20210510
  6. VITAMIN B [Concomitant]
     Active Substance: VITAMIN B
     Indication: SUPPLEMENTATION THERAPY
  7. FLONASE [Concomitant]
     Active Substance: FLUTICASONE PROPIONATE
     Indication: HYPERSENSITIVITY
  8. VITAMIN C [Concomitant]
     Active Substance: ASCORBIC ACID
     Indication: HYPERSENSITIVITY

REACTIONS (10)
  - SARS-CoV-2 test positive [Recovered/Resolved]
  - Pyrexia [Recovered/Resolved]
  - Rhinorrhoea [Recovered/Resolved]
  - Aphonia [Recovered/Resolved]
  - Sinusitis [Recovered/Resolved]
  - Psoriasis [Recovered/Resolved]
  - Rash [Recovered/Resolved]
  - Seasonal allergy [Recovered/Resolved]
  - Anosmia [Recovered/Resolved]
  - Wound infection staphylococcal [Recovered/Resolved]

NARRATIVE: CASE EVENT DATE: 202012
